FAERS Safety Report 18177363 (Version 1)
Quarter: 2020Q3

REPORT INFORMATION
  Report Type: Spontaneous
  Country: IT (occurrence: IT)
  Receive Date: 20200821
  Receipt Date: 20200821
  Transmission Date: 20201103
  Serious: Yes (Other)
  Sender: FDA-Public Use
  Company Number: IT-AUROBINDO-AUR-APL-2014-07347

PATIENT
  Age: 45 Year
  Sex: Male

DRUGS (2)
  1. FLUVOXAMINE [Concomitant]
     Active Substance: FLUVOXAMINE
     Indication: PRODUCT USED FOR UNKNOWN INDICATION
     Dosage: 50 MILLIGRAM AT BEDTIME
     Route: 065
  2. PAROXETINE 20MG [Suspect]
     Active Substance: PAROXETINE
     Indication: MAJOR DEPRESSION
     Dosage: 20 MG, AT BEDTIME
     Route: 065

REACTIONS (13)
  - Paraesthesia [Recovering/Resolving]
  - Aggression [Recovering/Resolving]
  - Nervousness [Recovering/Resolving]
  - Indifference [Recovering/Resolving]
  - Insomnia [Recovering/Resolving]
  - Visual impairment [Recovering/Resolving]
  - Hypoaesthesia [Recovering/Resolving]
  - Gambling disorder [Recovered/Resolved]
  - Memory impairment [Recovering/Resolving]
  - Impulsive behaviour [Recovering/Resolving]
  - Anxiety [Recovering/Resolving]
  - Euphoric mood [Recovering/Resolving]
  - Drug withdrawal syndrome [Recovering/Resolving]
